FAERS Safety Report 6074605-9 (Version None)
Quarter: 2009Q1

REPORT INFORMATION
  Report Type: 
  Country: None (occurrence: None)
  Receive Date: 20090211
  Receipt Date: 20090130
  Transmission Date: 20090719
  Serious: Yes (Other)
  Sender: FDA-Public Use
  Company Number: US-WYE-H07983009

PATIENT
  Sex: Female

DRUGS (2)
  1. PREMPRO [Suspect]
     Indication: HORMONE REPLACEMENT THERAPY
     Dosage: 0.3MG/1.5MG
     Route: 048
     Dates: start: 20060101
  2. PREMPRO [Suspect]
     Indication: MENOPAUSE

REACTIONS (5)
  - CHROMATURIA [None]
  - GASTROENTERITIS VIRAL [None]
  - HEPATITIS [None]
  - JAUNDICE [None]
  - URINARY TRACT INFECTION [None]
